FAERS Safety Report 4318445-7 (Version None)
Quarter: 2004Q1

REPORT INFORMATION
  Report Type: 
  Country: None (occurrence: None)
  Receive Date: 20040315
  Receipt Date: 20040305
  Transmission Date: 20041129
  Serious: Yes (Hospitalization)
  Sender: FDA-Public Use
  Company Number: K200400300

PATIENT
  Age: 81 Year
  Sex: Female

DRUGS (1)
  1. ALTACE [Suspect]
     Dosage: 1.25 MG, QD, ORAL
     Route: 048
     Dates: start: 20031210, end: 20040119

REACTIONS (2)
  - PSORIASIS [None]
  - VAGINAL MYCOSIS [None]
